FAERS Safety Report 8580433 (Version 3)
Quarter: 2016Q3

REPORT INFORMATION
  Report Type: Report from Study
  Country: FR (occurrence: FR)
  Receive Date: 20120525
  Receipt Date: 20160716
  Transmission Date: 20161109
  Serious: Yes (Hospitalization)
  Sender: FDA-Public Use
  Company Number: FR-BAXTER-2012BAX006414

PATIENT
  Age: 66 Year
  Sex: Female

DRUGS (7)
  1. DOXORUBICIN HCL [Suspect]
     Active Substance: DOXORUBICIN HYDROCHLORIDE
     Indication: MANTLE CELL LYMPHOMA RECURRENT
     Route: 065
     Dates: start: 20120126, end: 20120130
  2. ENDOXAN 1000 MG, POUDRE POUR SOLUTION INJECTABLE [Suspect]
     Active Substance: CYCLOPHOSPHAMIDE
     Indication: MANTLE CELL LYMPHOMA RECURRENT
     Dosage: 1 DOSAGE FORMS
     Route: 065
     Dates: start: 20120126, end: 20120130
  3. PREDNISONE. [Suspect]
     Active Substance: PREDNISONE
     Indication: MANTLE CELL LYMPHOMA RECURRENT
     Route: 065
     Dates: start: 20120126, end: 20120130
  4. TORISEL [Suspect]
     Active Substance: TEMSIROLIMUS
     Dosage: CYCLE 1, ARM A (R-CHOP-T), MOST RECENT DOSE BEFORE THE EVENTS ONSET
     Route: 065
     Dates: start: 20120202
  5. VINCRISTINE SULFATE. [Suspect]
     Active Substance: VINCRISTINE SULFATE
     Indication: MANTLE CELL LYMPHOMA RECURRENT
     Route: 065
     Dates: start: 20120126, end: 20120130
  6. RITUXIMAB [Suspect]
     Active Substance: RITUXIMAB
     Indication: MANTLE CELL LYMPHOMA RECURRENT
     Route: 065
     Dates: start: 20120126, end: 20120130
  7. TORISEL [Suspect]
     Active Substance: TEMSIROLIMUS
     Indication: MANTLE CELL LYMPHOMA RECURRENT
     Route: 065
     Dates: start: 20120127

REACTIONS (5)
  - Gastric ulcer perforation [None]
  - Febrile neutropenia [Recovered/Resolved]
  - Febrile bone marrow aplasia [Recovered/Resolved]
  - Portal hypertension [None]
  - Gastrointestinal haemorrhage [Recovered/Resolved]

NARRATIVE: CASE EVENT DATE: 20120205
